FAERS Safety Report 13824438 (Version 1)
Quarter: 2017Q3

REPORT INFORMATION
  Report Type: Spontaneous
  Country: US (occurrence: US)
  Receive Date: 20170802
  Receipt Date: 20170802
  Transmission Date: 20171127
  Serious: Yes (Hospitalization, Other)
  Sender: FDA-Public Use
  Company Number: US-GLAXOSMITHKLINE-US2017118915

PATIENT
  Sex: Female

DRUGS (7)
  1. ASTELIN [Concomitant]
     Active Substance: AZELASTINE HYDROCHLORIDE
  2. AMLODIPINE [Concomitant]
     Active Substance: AMLODIPINE BESYLATE
  3. TYLENOL [Concomitant]
     Active Substance: ACETAMINOPHEN
  4. BREO ELLIPTA [Suspect]
     Active Substance: FLUTICASONE FUROATE\VILANTEROL TRIFENATATE
     Indication: PRODUCT USED FOR UNKNOWN INDICATION
     Dosage: 1 PUFF(S), QD
     Route: 055
  5. FLONASE [Suspect]
     Active Substance: FLUTICASONE PROPIONATE
     Indication: RHINITIS ALLERGIC
  6. VALIUM [Suspect]
     Active Substance: DIAZEPAM
  7. SYNTHROID [Concomitant]
     Active Substance: LEVOTHYROXINE SODIUM

REACTIONS (8)
  - Heart rate increased [Recovered/Resolved]
  - Extra dose administered [Unknown]
  - Rectal prolapse [Not Recovered/Not Resolved]
  - Drug prescribing error [Unknown]
  - Nervousness [Recovered/Resolved]
  - Pneumonia [Recovering/Resolving]
  - Wrong technique in device usage process [Unknown]
  - Somnolence [Unknown]

NARRATIVE: CASE EVENT DATE: 201707
